FAERS Safety Report 6287194-0 (Version None)
Quarter: 2009Q3

REPORT INFORMATION
  Report Type: 
  Country: None (occurrence: None)
  Receive Date: 20090716
  Receipt Date: 20090310
  Transmission Date: 20100115
  Serious: Yes (Hospitalization)
  Sender: FDA-Public Use
  Company Number: 2009BI000456

PATIENT
  Sex: Male

DRUGS (1)
  1. AVONEX [Suspect]
     Indication: MULTIPLE SCLEROSIS
     Dosage: ;QW;IM
     Dates: end: 19960101

REACTIONS (5)
  - BLINDNESS UNILATERAL [None]
  - DRUG INEFFECTIVE [None]
  - HYPOACUSIS [None]
  - MULTIPLE SCLEROSIS RELAPSE [None]
  - NEUTRALISING ANTIBODIES POSITIVE [None]
